FAERS Safety Report 14454331 (Version 1)
Quarter: 2018Q1

REPORT INFORMATION
  Report Type: Spontaneous
  Country: FR (occurrence: FR)
  Receive Date: 20180129
  Receipt Date: 20180129
  Transmission Date: 20180509
  Serious: Yes (Hospitalization)
  Sender: FDA-Public Use
  Company Number: FR-ELI_LILLY_AND_COMPANY-FR201801010222

PATIENT
  Age: 48 Year
  Sex: Male

DRUGS (6)
  1. SERESTA [Concomitant]
     Active Substance: OXAZEPAM
     Indication: ANXIETY
     Dosage: 50 MG, DAILY
     Route: 048
  2. METHADONE [Concomitant]
     Active Substance: METHADONE HYDROCHLORIDE
     Indication: DRUG DEPENDENCE
     Dosage: 25 MG, DAILY
     Route: 048
  3. PROZAC [Suspect]
     Active Substance: FLUOXETINE HYDROCHLORIDE
     Indication: DEPRESSION
     Dosage: 20 MG, DAILY
     Route: 048
     Dates: end: 20171210
  4. KETOPROFENE                        /00321701/ [Suspect]
     Active Substance: KETOPROFEN
     Indication: ARTHRALGIA
     Dosage: UNK UNK, UNKNOWN
     Route: 048
     Dates: start: 201711, end: 20171205
  5. COUMADINE [Suspect]
     Active Substance: WARFARIN SODIUM
     Indication: CARDIAC VALVE PROSTHESIS USER
     Dosage: UNK UNK, UNKNOWN
     Route: 048
     Dates: start: 2015, end: 20171210
  6. BISOPROLOL                         /00802602/ [Concomitant]
     Active Substance: BISOPROLOL
     Indication: HYPERTENSION
     Dosage: 2.5 MG, DAILY
     Route: 048
     Dates: end: 20171110

REACTIONS (2)
  - Melaena [Recovered/Resolved]
  - Haemorrhagic anaemia [Recovering/Resolving]

NARRATIVE: CASE EVENT DATE: 20171127
